FAERS Safety Report 17404568 (Version 1)
Quarter: 2020Q1

REPORT INFORMATION
  Report Type: Report from Study
  Country: FR (occurrence: FR)
  Receive Date: 20200211
  Receipt Date: 20200211
  Transmission Date: 20200409
  Serious: Yes (Death, Other)
  Sender: FDA-Public Use
  Company Number: FR-JAZZ-2020-FR-001799

PATIENT

DRUGS (1)
  1. DEFITELIO [Suspect]
     Active Substance: DEFIBROTIDE SODIUM
     Indication: VENOOCCLUSIVE DISEASE
     Dosage: 25 MG/KG/DAY
     Route: 042
     Dates: start: 20170604, end: 20170616

REACTIONS (7)
  - Off label use [Unknown]
  - Venoocclusive disease [Fatal]
  - Rectal haemorrhage [Recovered/Resolved]
  - Mucosa vesicle [Recovered/Resolved]
  - Epistaxis [Recovered/Resolved]
  - Infection [Fatal]
  - Haemorrhage [Recovered/Resolved]

NARRATIVE: CASE EVENT DATE: 20170604
